FAERS Safety Report 9304646 (Version 3)
Quarter: 2013Q3

REPORT INFORMATION
  Report Type: Spontaneous
  Country: BE (occurrence: BE)
  Receive Date: 20130523
  Receipt Date: 20130709
  Transmission Date: 20140515
  Serious: Yes (Other)
  Sender: FDA-Public Use
  Company Number: BE-ROCHE-1227600

PATIENT
  Age: 59 Year
  Sex: Female

DRUGS (3)
  1. MABTHERA [Suspect]
     Indication: NON-HODGKIN^S LYMPHOMA
     Route: 042
     Dates: start: 20130429, end: 20130429
  2. CYCLOPHOSPHAMIDE [Concomitant]
     Route: 042
     Dates: start: 20130429, end: 20130429
  3. VINCRISTINE [Concomitant]
     Route: 042
     Dates: start: 20130429, end: 20130429

REACTIONS (1)
  - Pleural effusion [Recovered/Resolved]
